FAERS Safety Report 18901429 (Version 3)
Quarter: 2021Q2

REPORT INFORMATION
  Report Type: Report from Study
  Country: US (occurrence: US)
  Receive Date: 20210216
  Receipt Date: 20210407
  Transmission Date: 20210717
  Serious: Yes (Hospitalization, Other)
  Sender: FDA-Public Use
  Company Number: US-JNJFOC-20210206701

PATIENT
  Age: 21 Year
  Sex: Female
  Weight: 76.8 kg

DRUGS (5)
  1. VELETRI [Suspect]
     Active Substance: EPOPROSTENOL
     Indication: PULMONARY ARTERIAL HYPERTENSION
     Route: 042
  2. ORENITRAM [Suspect]
     Active Substance: TREPROSTINIL
  3. AMBRISENTAN [Concomitant]
     Active Substance: AMBRISENTAN
  4. ALYQ [Concomitant]
     Active Substance: TADALAFIL
  5. VELETRI [Suspect]
     Active Substance: EPOPROSTENOL
     Route: 042

REACTIONS (8)
  - Thrombosis in device [Unknown]
  - Dermatitis allergic [Unknown]
  - Staphylococcal infection [Unknown]
  - Nausea [Unknown]
  - Device alarm issue [Unknown]
  - Product administration interrupted [Unknown]
  - Therapy change [Unknown]
  - Headache [Unknown]

NARRATIVE: CASE EVENT DATE: 20210129
